FAERS Safety Report 5488035-1 (Version None)
Quarter: 2007Q4

REPORT INFORMATION
  Report Type: 
  Country: None (occurrence: None)
  Receive Date: 20071017
  Receipt Date: 20071011
  Transmission Date: 20080405
  Serious: Yes (Other)
  Sender: FDA-Public Use
  Company Number: US-JNJFOC-20071003290

PATIENT
  Age: 70 Year
  Sex: Male
  Weight: 74.84 kg

DRUGS (2)
  1. RAZADYNE ER [Suspect]
     Route: 048
  2. RAZADYNE ER [Suspect]
     Indication: DEMENTIA ALZHEIMER'S TYPE
     Route: 048

REACTIONS (4)
  - BLINDNESS [None]
  - CHILLS [None]
  - EYE PAIN [None]
  - HYPERHIDROSIS [None]
